FAERS Safety Report 5895692-4 (Version None)
Quarter: 2008Q3

REPORT INFORMATION
  Report Type: 
  Country: None (occurrence: None)
  Receive Date: 20080924
  Receipt Date: 20071106
  Transmission Date: 20090109
  Serious: No
  Sender: FDA-Public Use
  Company Number: US-BAYER-200712747BWH

PATIENT
  Age: 50 Year
  Sex: Male

DRUGS (2)
  1. CIPRO [Suspect]
     Indication: GASTROENTERITIS VIRAL
     Route: 048
     Dates: start: 20070809, end: 20070811
  2. VITAMIN TAB [Concomitant]

REACTIONS (7)
  - ARTHRALGIA [None]
  - FATIGUE [None]
  - JOINT STIFFNESS [None]
  - MALAISE [None]
  - MYALGIA [None]
  - NECK PAIN [None]
  - SENSATION OF FOREIGN BODY [None]
